FAERS Safety Report 17850884 (Version 1)
Quarter: 2020Q2

REPORT INFORMATION
  Report Type: Spontaneous
  Country: US (occurrence: US)
  Receive Date: 20200602
  Receipt Date: 20200602
  Transmission Date: 20200714
  Serious: Yes (Hospitalization)
  Sender: FDA-Public Use
  Company Number: US-BAYER-2020-100610

PATIENT
  Sex: Male

DRUGS (15)
  1. ASPIRIN EC [Concomitant]
     Active Substance: ASPIRIN
  2. GLIPIZIDE. [Concomitant]
     Active Substance: GLIPIZIDE
  3. LONSURF [Suspect]
     Active Substance: TIPIRACIL HYDROCHLORIDE\TRIFLURIDINE
     Indication: COLON CANCER
     Dosage: 40 MG, BID
     Route: 048
     Dates: start: 20170906
  4. TRAMADOL. [Concomitant]
     Active Substance: TRAMADOL
  5. SYNTHROID [Concomitant]
     Active Substance: LEVOTHYROXINE SODIUM
  6. LOSARTAN. [Concomitant]
     Active Substance: LOSARTAN
  7. ELIQUIS [Concomitant]
     Active Substance: APIXABAN
  8. ASPIRIN (PAIN AND FEVER) [Concomitant]
     Active Substance: ASPIRIN
  9. METFORMIN [Concomitant]
     Active Substance: METFORMIN HYDROCHLORIDE
  10. LEVOFLOXACIN. [Concomitant]
     Active Substance: LEVOFLOXACIN
  11. METHYLPREDNISOLONE. [Concomitant]
     Active Substance: METHYLPREDNISOLONE
  12. ACYCLOVIR [ACICLOVIR] [Concomitant]
     Active Substance: ACYCLOVIR
  13. STIVARGA [Suspect]
     Active Substance: REGORAFENIB
     Indication: COLON CANCER
  14. CIPROFLOXACIN. [Concomitant]
     Active Substance: CIPROFLOXACIN
  15. NIFEDIPINE. [Concomitant]
     Active Substance: NIFEDIPINE

REACTIONS (4)
  - Hospitalisation [None]
  - Rash [Unknown]
  - Ill-defined disorder [None]
  - Gout [Unknown]
